FAERS Safety Report 9113505 (Version 1)
Quarter: 2013Q1

REPORT INFORMATION
  Report Type: Spontaneous
  Country: US (occurrence: US)
  Receive Date: 20130129
  Receipt Date: 20130129
  Transmission Date: 20140127
  Serious: Yes (Other)
  Sender: FDA-Public Use
  Company Number: US-009507513-1301USA003648

PATIENT
  Age: 49 Year
  Sex: Female

DRUGS (8)
  1. MONTELUKAST SODIUM [Suspect]
     Route: 048
  2. ALBUTEROL [Suspect]
     Route: 048
  3. SALCATONIN [Suspect]
     Route: 048
  4. NEURO RATIOPHARM [Suspect]
     Route: 048
  5. LEVOTHYROXINE SODIUM [Suspect]
     Route: 048
  6. ACETYLCYSTEINE [Suspect]
     Route: 048
  7. ALENDRONATE SODIUM [Suspect]
     Route: 048
  8. SPIRIVA [Suspect]
     Route: 048

REACTIONS (2)
  - Suicide attempt [Unknown]
  - Somnolence [Unknown]
